FAERS Safety Report 13361068 (Version 1)
Quarter: 2017Q1

REPORT INFORMATION
  Report Type: Spontaneous
  Country: US (occurrence: US)
  Receive Date: 20170322
  Receipt Date: 20170322
  Transmission Date: 20170429
  Serious: No
  Sender: FDA-Public Use
  Company Number: US-AMGEN-USASP2017038523

PATIENT
  Age: 44 Year
  Sex: Female

DRUGS (10)
  1. VENTOLIN [Concomitant]
     Active Substance: ALBUTEROL SULFATE
  2. CLONIDINE. [Concomitant]
     Active Substance: CLONIDINE
  3. ENBREL [Suspect]
     Active Substance: ETANERCEPT
     Indication: PRODUCT USED FOR UNKNOWN INDICATION
     Dosage: 25 MG, 2 TIMES/WK
     Route: 058
  4. CLONAZEPAM. [Concomitant]
     Active Substance: CLONAZEPAM
  5. BELSOMRA [Concomitant]
     Active Substance: SUVOREXANT
  6. OFLOXACIN. [Concomitant]
     Active Substance: OFLOXACIN
  7. PREDNISONE. [Concomitant]
     Active Substance: PREDNISONE
  8. FOLIC ACID. [Concomitant]
     Active Substance: FOLIC ACID
  9. METHOTREXATE. [Concomitant]
     Active Substance: METHOTREXATE
  10. VENLAFAXINE [Concomitant]
     Active Substance: VENLAFAXINE HYDROCHLORIDE

REACTIONS (1)
  - Atypical pneumonia [Unknown]

NARRATIVE: CASE EVENT DATE: 201702
